FAERS Safety Report 23725487 (Version 2)
Quarter: 2024Q2

REPORT INFORMATION
  Report Type: Other
  Country: US (occurrence: None)
  Receive Date: 20240410
  Receipt Date: 20240415
  Transmission Date: 20240715
  Serious: Yes (Hospitalization)
  Sender: FDA-Public Use
  Company Number: US-ROCHE-3538467

PATIENT
  Age: 66 Year
  Sex: Male
  Weight: 91.254 kg

DRUGS (1)
  1. OCREVUS [Suspect]
     Active Substance: OCRELIZUMAB
     Indication: Primary progressive multiple sclerosis
     Dosage: PRESCRIBED DOSE: 300 MG IV 2 WEEKS APART AND THEN 600 MG IV EVERY 6 MONTHS. DATE OCREVUS LAST ADMINI
     Route: 042
     Dates: start: 2021

REACTIONS (3)
  - Myocardial infarction [Recovered/Resolved]
  - Clostridium difficile colitis [Recovering/Resolving]
  - Rubber sensitivity [Not Recovered/Not Resolved]

NARRATIVE: CASE EVENT DATE: 20240101
